FAERS Safety Report 7126687-0 (Version None)
Quarter: 2010Q4

REPORT INFORMATION
  Report Type: 
  Country: None (occurrence: None)
  Receive Date: 20101129
  Receipt Date: 20101118
  Transmission Date: 20110411
  Serious: Yes (Hospitalization)
  Sender: FDA-Public Use
  Company Number: SE-ROCHE-743143

PATIENT
  Age: 61 Year
  Sex: Female

DRUGS (5)
  1. NAPROSYN [Suspect]
     Dosage: REPORTED AS NAPROSYN ENTERO DOSE: 750 MGD
     Route: 048
     Dates: start: 20101006, end: 20101016
  2. DYGRATYL [Suspect]
     Indication: HYPOPARATHYROIDISM
     Dosage: REPORTED AS DYGRATYL TABL 0.2 MGD. DOSE: 0.4 MGD
     Route: 048
     Dates: end: 20101014
  3. LEVAXIN TABLETS [Concomitant]
     Dosage: REPORTED AS LEVAXIN TABL 75 MIKROG
  4. TRAMADOL HCL [Concomitant]
  5. ACETAMINOPHEN [Concomitant]
     Dosage: REPORTED AS PANODIL FORTE FC

REACTIONS (3)
  - BLOOD CREATININE INCREASED [None]
  - HYPERCALCAEMIA [None]
  - PERSONALITY DISORDER [None]
